FAERS Safety Report 5634946-3 (Version None)
Quarter: 2008Q1

REPORT INFORMATION
  Report Type: 
  Country: None (occurrence: None)
  Receive Date: 20080222
  Receipt Date: 20080219
  Transmission Date: 20080703
  Serious: Yes (Death, Hospitalization, Other)
  Sender: FDA-Public Use
  Company Number: US-BRISTOL-MYERS SQUIBB COMPANY-14084750

PATIENT
  Age: 80 Year
  Sex: Female

DRUGS (1)
  1. IXEMPRA [Suspect]
     Indication: ENDOMETRIAL CANCER
     Dosage: DOSE: 40MG/M2 IV OVER 3HOURS ON DAY1 INITIAL DOSE: 04-OCT-2007 LAST DOSE:    27-DEC-2007
     Route: 042
     Dates: start: 20071227, end: 20071227

REACTIONS (6)
  - ATAXIA [None]
  - CONFUSIONAL STATE [None]
  - FEBRILE NEUTROPENIA [None]
  - HYPOXIA [None]
  - PLEURAL EFFUSION [None]
  - PNEUMONITIS [None]
